FAERS Safety Report 12386641 (Version 2)
Quarter: 2016Q3

REPORT INFORMATION
  Report Type: Report from Study
  Country: US (occurrence: US)
  Receive Date: 20160519
  Receipt Date: 20160720
  Transmission Date: 20161109
  Serious: Yes (Hospitalization)
  Sender: FDA-Public Use
  Company Number: US-MYLANLABS-2016M1020377

PATIENT

DRUGS (1)
  1. AZACITIDINE. [Suspect]
     Active Substance: AZACITIDINE
     Indication: ACUTE MYELOID LEUKAEMIA
     Dosage: 50 MG/M2 DAILY ON DAYS 1-10
     Route: 058

REACTIONS (3)
  - Pericarditis [Recovered/Resolved]
  - Off label use [Recovered/Resolved]
  - Pericardial effusion [Recovered/Resolved]
